FAERS Safety Report 8922253 (Version 1)
Quarter: 2012Q4

REPORT INFORMATION
  Report Type: 
  Country: US (occurrence: US)
  Receive Date: 20121123
  Receipt Date: 20121123
  Transmission Date: 20130627
  Serious: Yes (Other)
  Sender: FDA-Public Use
  Company Number: PHEH2012US022664

PATIENT
  Sex: Female

DRUGS (2)
  1. VIVELLE DOT [Suspect]
     Dosage: 0.05 mg, UNK
     Route: 062
  2. SPIRONOLACTONE [Concomitant]

REACTIONS (2)
  - Haemorrhage [Unknown]
  - Vulvovaginal dryness [Unknown]
